FAERS Safety Report 9265606 (Version 2)
Quarter: 2013Q2

REPORT INFORMATION
  Report Type: Spontaneous
  Country: FR (occurrence: FR)
  Receive Date: 20130501
  Receipt Date: 20130610
  Transmission Date: 20140414
  Serious: Yes (Hospitalization, Other)
  Sender: FDA-Public Use
  Company Number: FR-VERTEX PHARMACEUTICALS INC-2013-005582

PATIENT
  Age: 69 Year
  Sex: Female

DRUGS (8)
  1. INCIVO [Suspect]
     Indication: HEPATIC CIRRHOSIS
     Dosage: 750 MG, BID
     Route: 048
     Dates: start: 20130114
  2. INCIVO [Suspect]
     Dosage: 375 MG, TID
     Route: 048
     Dates: end: 20130407
  3. COPEGUS [Suspect]
     Indication: HEPATIC CIRRHOSIS
     Dosage: UNK, BID
     Route: 048
  4. COPEGUS [Suspect]
     Dosage: DOSAGE FORM: UNSPECIFIED
     Route: 048
     Dates: start: 20130114
  5. PEGASYS [Concomitant]
     Indication: HEPATIC CIRRHOSIS
     Dosage: 180 ?G, QW
     Dates: start: 20130114
  6. LEVOTHYROX [Concomitant]
     Indication: THYROID DISORDER
     Dosage: 125UG - 200UG A DAY
     Route: 048
  7. IPERTEN [Concomitant]
     Indication: HYPERTENSION
     Dosage: DOSAGE FORM: UNSPECIFIED
     Route: 048
  8. COTAREG [Concomitant]
     Indication: HYPERTENSION
     Dosage: DOSAGE FORM: UNKNOWN
     Route: 048
     Dates: end: 20130309

REACTIONS (4)
  - Renal failure [Recovered/Resolved]
  - Klebsiella infection [Unknown]
  - Anaemia [Recovered/Resolved]
  - Rash [Unknown]
